FAERS Safety Report 17204257 (Version 2)
Quarter: 2020Q1

REPORT INFORMATION
  Report Type: Report from Study
  Country: None (occurrence: US)
  Receive Date: 20191226
  Receipt Date: 20200106
  Transmission Date: 20200409
  Serious: Yes (Hospitalization, Other)
  Sender: FDA-Public Use
  Company Number: US-ABBVIE-19K-163-3208433-00

PATIENT
  Age: 69 Year
  Sex: Female
  Weight: 85.35 kg

DRUGS (1)
  1. SKYRIZI [Suspect]
     Active Substance: RISANKIZUMAB-RZAA
     Indication: PSORIASIS
     Route: 058
     Dates: start: 201910

REACTIONS (5)
  - Viral infection [Recovering/Resolving]
  - Basal cell carcinoma [Recovered/Resolved]
  - Cystitis [Recovering/Resolving]
  - Cough [Recovering/Resolving]
  - Hypoacusis [Not Recovered/Not Resolved]

NARRATIVE: CASE EVENT DATE: 20191129
